FAERS Safety Report 24115405 (Version 1)
Quarter: 2024Q3

REPORT INFORMATION
  Report Type: Spontaneous
  Country: US (occurrence: US)
  Receive Date: 20240721
  Receipt Date: 20240721
  Transmission Date: 20241016
  Serious: No
  Sender: NOVO NORDISK
  Company Number: US-NOVOPROD-1213553

PATIENT
  Age: 54 Year
  Sex: Female

DRUGS (1)
  1. WEGOVY [Suspect]
     Active Substance: SEMAGLUTIDE
     Indication: Product used for unknown indication
     Dosage: 0.5 MG, QW( 0.5MG ONCE WEEKLY)
     Route: 058
     Dates: start: 20240308, end: 20240419

REACTIONS (3)
  - Taste disorder [Not Recovered/Not Resolved]
  - Eructation [Not Recovered/Not Resolved]
  - Parosmia [Unknown]

NARRATIVE: CASE EVENT DATE: 20240405
